FAERS Safety Report 19684140 (Version 15)
Quarter: 2025Q2

REPORT INFORMATION
  Report Type: Spontaneous
  Country: US (occurrence: US)
  Receive Date: 20210811
  Receipt Date: 20250620
  Transmission Date: 20250717
  Serious: Yes (Hospitalization, Other)
  Sender: BIOGEN
  Company Number: US-BIOGEN-2021BI01037286

PATIENT
  Sex: Female

DRUGS (1)
  1. TYSABRI [Suspect]
     Active Substance: NATALIZUMAB
     Indication: Multiple sclerosis
     Route: 050
     Dates: start: 20151006, end: 20210512

REACTIONS (11)
  - Cirrhosis alcoholic [Not Recovered/Not Resolved]
  - Hepatitis alcoholic [Unknown]
  - Multiple sclerosis relapse [Unknown]
  - Pain [Not Recovered/Not Resolved]
  - Hepatic encephalopathy [Recovered/Resolved]
  - Nervousness [Not Recovered/Not Resolved]
  - Intervertebral disc protrusion [Unknown]
  - Fibromyalgia [Unknown]
  - Abdominal pain lower [Unknown]
  - Headache [Unknown]
  - Fatigue [Unknown]

NARRATIVE: CASE EVENT DATE: 20210101
